FAERS Safety Report 16691713 (Version 2)
Quarter: 2021Q4

REPORT INFORMATION
  Report Type: Spontaneous
  Country: ES (occurrence: ES)
  Receive Date: 20190812
  Receipt Date: 20211028
  Transmission Date: 20220303
  Serious: Yes (Hospitalization, Other)
  Sender: FDA-Public Use
  Company Number: ES-AEMPS-526703

PATIENT
  Age: 93 Year
  Sex: Female

DRUGS (6)
  1. LEVOFLOXACIN [Interacting]
     Active Substance: LEVOFLOXACIN
     Indication: Nasopharyngitis
     Dosage: 500 MILLIGRAM, DAILY
     Route: 048
     Dates: start: 20190415, end: 20190418
  2. PANTOPRAZOLE [Interacting]
     Active Substance: PANTOPRAZOLE
     Indication: Prophylaxis
     Dosage: 20 MILLIGRAM, DAILY
     Route: 048
     Dates: start: 200807
  3. CLOPIDOGREL [Concomitant]
     Active Substance: CLOPIDOGREL BISULFATE
     Indication: Aortic stenosis
     Dosage: 75 MILLIGRAM, DAILY
     Route: 048
     Dates: start: 201010
  4. FUROSEMIDE [Concomitant]
     Active Substance: FUROSEMIDE
     Indication: Cardiac failure congestive
     Dosage: 40 MILLIGRAM, DAILY
     Route: 048
     Dates: start: 200808
  5. PAROXETINE [Concomitant]
     Active Substance: PAROXETINE
     Indication: Depression
     Dosage: 20 MILLIGRAM, DAILY
     Route: 048
     Dates: start: 200910
  6. RISPERIDONE [Concomitant]
     Active Substance: RISPERIDONE
     Indication: Dementia
     Dosage: 1 MILLIGRAM, DAILY
     Route: 048
     Dates: start: 201810

REACTIONS (1)
  - Clostridium difficile colitis [Recovering/Resolving]

NARRATIVE: CASE EVENT DATE: 20190422
